FAERS Safety Report 7624255-5 (Version None)
Quarter: 2011Q3

REPORT INFORMATION
  Report Type: 
  Country: None (occurrence: None)
  Receive Date: 20110712
  Receipt Date: 20110627
  Transmission Date: 20111222
  Serious: Yes (Hospitalization)
  Sender: FDA-Public Use
  Company Number: 1000021965

PATIENT
  Age: 61 Year
  Sex: Male

DRUGS (10)
  1. L-THYROXIN(LEVOTHYROXINE SODIUM)(LEVOTHYROXINE SODIUM) [Concomitant]
  2. DIOVAN [Concomitant]
  3. CITALOPRAM HYDROBROMIDE [Suspect]
     Dosage: 20 MG (20 MG, 1 IN 1 D),ORAL, 30 MG (30 MG, 1 IN 1 D),ORAL, 40 MG (40 MG, 1 IN 1 D),ORAL
     Route: 048
     Dates: start: 20110205, end: 20110217
  4. CITALOPRAM HYDROBROMIDE [Suspect]
     Dosage: 20 MG (20 MG, 1 IN 1 D),ORAL, 30 MG (30 MG, 1 IN 1 D),ORAL, 40 MG (40 MG, 1 IN 1 D),ORAL
     Route: 048
     Dates: start: 20110228
  5. CITALOPRAM HYDROBROMIDE [Suspect]
     Dosage: 20 MG (20 MG, 1 IN 1 D),ORAL, 30 MG (30 MG, 1 IN 1 D),ORAL, 40 MG (40 MG, 1 IN 1 D),ORAL
     Route: 048
     Dates: start: 20110218, end: 20110227
  6. ZYPREXA [Suspect]
     Indication: MAJOR DEPRESSION
     Dosage: 5 MG (5 MG, 1 IN 1 D),ORAL,  7.5 MG (7.5 MG, 1 IN 1 D),ORAL, 10 MG (10 MG, 1 IN 1 D),ORAL
     Route: 048
     Dates: start: 20110314, end: 20110316
  7. ZYPREXA [Suspect]
     Indication: MAJOR DEPRESSION
     Dosage: 5 MG (5 MG, 1 IN 1 D),ORAL,  7.5 MG (7.5 MG, 1 IN 1 D),ORAL, 10 MG (10 MG, 1 IN 1 D),ORAL
     Route: 048
     Dates: start: 20110321, end: 20110323
  8. ZYPREXA [Suspect]
     Indication: MAJOR DEPRESSION
     Dosage: 5 MG (5 MG, 1 IN 1 D),ORAL,  7.5 MG (7.5 MG, 1 IN 1 D),ORAL, 10 MG (10 MG, 1 IN 1 D),ORAL
     Route: 048
     Dates: start: 20110317, end: 20110320
  9. CARVEDILOL [Concomitant]
  10. SEROQUEL (QUETIAPINE FUMARATE) (QUETIAPINE FUMARATE) [Concomitant]

REACTIONS (6)
  - BLOOD TRIGLYCERIDES INCREASED [None]
  - BLOOD PROLACTIN INCREASED [None]
  - SOMNOLENCE [None]
  - BREAST SWELLING [None]
  - FATIGUE [None]
  - BREAST DISCOMFORT [None]
